FAERS Safety Report 5448038-X (Version None)
Quarter: 2007Q3

REPORT INFORMATION
  Report Type: 
  Country: None (occurrence: None)
  Receive Date: 20070910
  Receipt Date: 20070829
  Transmission Date: 20080115
  Serious: Yes (Hospitalization)
  Sender: FDA-Public Use
  Company Number: FR-GILEAD-2007-0013187

PATIENT
  Sex: Male

DRUGS (3)
  1. TRUVADA [Suspect]
     Indication: HIV INFECTION
     Route: 048
     Dates: start: 20070608, end: 20070723
  2. VIRAMUNE [Suspect]
     Route: 048
     Dates: start: 20070623, end: 20070723
  3. VIRAMUNE [Suspect]
     Route: 048
     Dates: start: 20070608, end: 20070622

REACTIONS (5)
  - BILIRUBIN CONJUGATED INCREASED [None]
  - EOSINOPHILIA [None]
  - JAUNDICE CHOLESTATIC [None]
  - LIVER DISORDER [None]
  - PYREXIA [None]
